FAERS Safety Report 5839954-5 (Version None)
Quarter: 2008Q3

REPORT INFORMATION
  Report Type: 
  Country: None (occurrence: None)
  Receive Date: 20080807
  Receipt Date: 20080807
  Transmission Date: 20090109
  Serious: Yes (Other)
  Sender: FDA-Public Use
  Company Number: None

PATIENT
  Age: 76 Year
  Sex: Female
  Weight: 70.1 kg

DRUGS (1)
  1. ACTIVASE [Suspect]
     Indication: CEREBROVASCULAR ACCIDENT
     Dosage: 6.3MG BOLUS X 1 IV; 56.8 1 OVER 1 HR IV
     Route: 042
     Dates: start: 20080626

REACTIONS (1)
  - ANGIOEDEMA [None]
